FAERS Safety Report 4709308-3 (Version None)
Quarter: 2005Q3

REPORT INFORMATION
  Report Type: 
  Country: None (occurrence: None)
  Receive Date: 20050707
  Receipt Date: 20050707
  Transmission Date: 20060218
  Serious: Yes (Life-Threatening)
  Sender: FDA-Public Use
  Company Number: None

PATIENT
  Sex: Female

DRUGS (2)
  1. VENOFER [Suspect]
     Indication: ANAEMIA
  2. VENOFER [Suspect]
     Indication: RENAL FAILURE CHRONIC

REACTIONS (10)
  - BLOOD PRESSURE INCREASED [None]
  - BLOOD PRESSURE SYSTOLIC DECREASED [None]
  - CHILLS [None]
  - DIZZINESS [None]
  - FEELING ABNORMAL [None]
  - INFUSION RELATED REACTION [None]
  - NAUSEA [None]
  - OEDEMA PERIPHERAL [None]
  - UNRESPONSIVE TO VERBAL STIMULI [None]
  - VOMITING [None]
